FAERS Safety Report 8007394-9 (Version None)
Quarter: 2011Q4

REPORT INFORMATION
  Report Type: 
  Country: None (occurrence: None)
  Receive Date: 20111227
  Receipt Date: 20111219
  Transmission Date: 20120403
  Serious: Yes (Other)
  Sender: FDA-Public Use
  Company Number: US-PFIZER INC-2011255914

PATIENT
  Sex: Male
  Weight: 117 kg

DRUGS (24)
  1. PRISTIQ [Suspect]
     Indication: DEPRESSION
     Dosage: 50 MG, DAILY
     Route: 048
     Dates: start: 20111004, end: 20111001
  2. ALLOPURINOL [Concomitant]
     Dosage: UNK
  3. AMBIEN [Concomitant]
     Indication: INSOMNIA
  4. LAMICTAL [Concomitant]
     Dosage: 150 MG, UNK
  5. TRAZODONE [Concomitant]
     Dosage: 10 UNK, UNK
  6. MELATONIN [Concomitant]
     Indication: MIDDLE INSOMNIA
     Dosage: UNK
  7. PRILOSEC [Concomitant]
     Dosage: UNK
  8. FLEXERIL [Concomitant]
     Dosage: UNK
  9. MIRAPEX [Concomitant]
     Dosage: 2 MG, UNK
  10. METFORMIN [Concomitant]
     Dosage: UNK
  11. CIALIS [Concomitant]
     Dosage: UNK
  12. MELATONIN [Concomitant]
     Indication: INSOMNIA
  13. LISINOPRIL [Concomitant]
     Dosage: UNK
  14. TRICOR [Concomitant]
     Dosage: UNK
  15. LORAZEPAM [Concomitant]
     Dosage: 5 MG, AS NEEDED
  16. KLONOPIN [Concomitant]
     Dosage: 1.5 MG, HS
  17. PROVIGIL [Concomitant]
     Dosage: 400-500 MG
  18. TESTOSTERONE [Concomitant]
     Dosage: EVERY 3 WEEKS
  19. CYMBALTA [Concomitant]
     Dosage: 50 MG, UNK
  20. DOXEPIN [Concomitant]
     Dosage: UNK
  21. GLIPIZIDE [Concomitant]
     Dosage: UNK, AS NEEDED
  22. INSULIN [Concomitant]
     Dosage: UNK
  23. BUSPAR [Concomitant]
     Dosage: 15 MG, 2X/DAY
  24. AMBIEN [Concomitant]
     Indication: MIDDLE INSOMNIA
     Dosage: UNK

REACTIONS (6)
  - ABDOMINAL PAIN UPPER [None]
  - CONSTIPATION [None]
  - ABDOMINAL DISCOMFORT [None]
  - ABDOMINAL PAIN [None]
  - SEXUAL DYSFUNCTION [None]
  - PAIN [None]
